FAERS Safety Report 22161115 (Version 1)
Quarter: 2023Q1

REPORT INFORMATION
  Report Type: Spontaneous
  Country: US (occurrence: US)
  Receive Date: 20230331
  Receipt Date: 20230331
  Transmission Date: 20230418
  Serious: No
  Sender: FDA-Public Use
  Company Number: US-Eisai Medical Research-EC-2023-135412

PATIENT
  Age: 76 Year
  Sex: Female
  Weight: 49.8 kg

DRUGS (4)
  1. LEQEMBI [Suspect]
     Active Substance: LECANEMAB-IRMB
     Indication: Dementia Alzheimer^s type
     Dosage: DOSE UNKNOWN
     Route: 041
     Dates: start: 20230227
  2. FLAXSEED [Concomitant]
     Active Substance: FLAX SEED
  3. PRASTERONE [Concomitant]
     Active Substance: PRASTERONE
  4. CURCUMIN [Concomitant]
     Active Substance: CURCUMIN

REACTIONS (6)
  - Pyrexia [Recovered/Resolved]
  - Somnolence [Recovered/Resolved]
  - Cough [Recovered/Resolved]
  - Fatigue [Recovering/Resolving]
  - Headache [Recovering/Resolving]
  - Dizziness [Recovered/Resolved]

NARRATIVE: CASE EVENT DATE: 20230301
